FAERS Safety Report 8772454 (Version 1)
Quarter: 2012Q4

REPORT INFORMATION
  Report Type: 
  Country: US (occurrence: US)
  Receive Date: 20120905
  Receipt Date: 20120905
  Transmission Date: 20130627
  Serious: No
  Sender: FDA-Public Use
  Company Number: US-TEVA-357386USA

PATIENT
  Age: 35 Year
  Sex: Female
  Weight: 49.94 kg

DRUGS (1)
  1. PLAN B ONE-STEP [Suspect]
     Indication: POST COITAL CONTRACEPTION
     Dosage: 1.5 Milligram Daily;
     Route: 048
     Dates: start: 20120825, end: 20120825

REACTIONS (4)
  - Breast discomfort [Not Recovered/Not Resolved]
  - Headache [Recovered/Resolved]
  - Pelvic pain [Not Recovered/Not Resolved]
  - Breast tenderness [Not Recovered/Not Resolved]
